FAERS Safety Report 6581979-9 (Version None)
Quarter: 2010Q1

REPORT INFORMATION
  Report Type: 
  Country: None (occurrence: None)
  Receive Date: 20100215
  Receipt Date: 20100205
  Transmission Date: 20100710
  Serious: Yes (Hospitalization, Other)
  Sender: FDA-Public Use
  Company Number: US-ABBOTT-10P-163-0624697-00

PATIENT
  Sex: Female
  Weight: 124.85 kg

DRUGS (8)
  1. HUMIRA [Suspect]
     Indication: UVEITIS
     Dosage: RECEIVED 1 INJECTION PRIOR TO SURGERY
     Route: 050
     Dates: start: 20091001, end: 20091001
  2. HUMIRA [Suspect]
     Indication: OSTEOARTHRITIS
     Route: 058
     Dates: start: 20091201, end: 20100101
  3. HUMIRA [Suspect]
     Route: 058
     Dates: start: 20100101
  4. ALTACE [Concomitant]
     Indication: DRUG USE FOR UNKNOWN INDICATION
  5. HYDROCHLOROTHIAZIDE [Concomitant]
     Indication: DRUG USE FOR UNKNOWN INDICATION
  6. LANTUS [Concomitant]
     Indication: DRUG USE FOR UNKNOWN INDICATION
  7. UNKNOWN SHORT ACTING INSULIN [Concomitant]
     Indication: DRUG USE FOR UNKNOWN INDICATION
  8. PREDNISONE [Concomitant]
     Indication: DRUG USE FOR UNKNOWN INDICATION

REACTIONS (4)
  - ARTHRITIS [None]
  - HERNIA [None]
  - INCISION SITE INFECTION [None]
  - UVEITIS [None]
